FAERS Safety Report 8933011 (Version 1)
Quarter: 2012Q4

REPORT INFORMATION
  Report Type: Spontaneous
  Country: US (occurrence: None)
  Receive Date: 20121127
  Receipt Date: 20121127
  Transmission Date: 20130627
  Serious: Yes (Hospitalization)
  Sender: FDA-Public Use
  Company Number: None

PATIENT
  Age: 23 Year
  Sex: Male
  Weight: 67.13 kg

DRUGS (3)
  1. EMTRICITABINE\TENOFOVIR [Suspect]
     Indication: HIV INFECTION
     Route: 048
     Dates: start: 20100702, end: 20121002
  2. DARUNAVIR [Suspect]
     Indication: HIV INFECTION
     Route: 048
     Dates: start: 20100702, end: 20121002
  3. RITONAVIR [Suspect]
     Route: 048
     Dates: start: 20100702, end: 20121002

REACTIONS (1)
  - Osteonecrosis [None]
